FAERS Safety Report 6085454-X (Version None)
Quarter: 2009Q1

REPORT INFORMATION
  Report Type: 
  Country: None (occurrence: None)
  Receive Date: 20090220
  Receipt Date: 20090217
  Transmission Date: 20090719
  Serious: Yes (Other)
  Sender: FDA-Public Use
  Company Number: IT-AVENTIS-200910808EU

PATIENT
  Sex: Male

DRUGS (2)
  1. CLEXANE T [Suspect]
     Indication: PROPHYLAXIS
     Route: 058
     Dates: end: 20090215
  2. ANTITHROMBOTIC AGENTS [Concomitant]
     Route: 048
     Dates: start: 20090215

REACTIONS (1)
  - INTERNATIONAL NORMALISED RATIO INCREASED [None]
